FAERS Safety Report 9461535 (Version 1)
Quarter: 2013Q3

REPORT INFORMATION
  Report Type: Spontaneous
  Country: US (occurrence: None)
  Receive Date: 20130814
  Receipt Date: 20130814
  Transmission Date: 20140515
  Serious: Yes (Life-Threatening, Other)
  Sender: FDA-Public Use
  Company Number: None

PATIENT
  Age: 29 Year
  Sex: Female
  Weight: 58.97 kg

DRUGS (17)
  1. TRAMADOL 50MG [Suspect]
     Indication: FIBROMYALGIA
     Dosage: 1-2 FOUR TIME DAILY TAKEN BY MOUTH
     Route: 048
     Dates: start: 20130320, end: 20130411
  2. TRAMADOL 50MG [Suspect]
     Indication: SJOGREN^S SYNDROME
     Dosage: 1-2 FOUR TIME DAILY TAKEN BY MOUTH
     Route: 048
     Dates: start: 20130320, end: 20130411
  3. VIVITROL [Concomitant]
  4. ZIPSOR [Concomitant]
  5. MALIC ACID W MAGNESIUM [Concomitant]
  6. ADRENAPLEX [Concomitant]
  7. PROBIOTIC [Concomitant]
  8. MULTIVIT [Concomitant]
  9. 1-TYROSINE [Concomitant]
  10. DLPA [Concomitant]
  11. B6 [Concomitant]
  12. B-COMPLEX [Concomitant]
  13. NERVEFIX [Concomitant]
  14. EXCEDRIN [Concomitant]
  15. IBUPROFEN [Concomitant]
  16. TYLENOL [Concomitant]
  17. ALEVE [Concomitant]

REACTIONS (2)
  - Drug dependence [None]
  - Withdrawal syndrome [None]
